FAERS Safety Report 4377923-5 (Version None)
Quarter: 2004Q2

REPORT INFORMATION
  Report Type: 
  Country: None (occurrence: None)
  Receive Date: 20040601
  Receipt Date: 20040217
  Transmission Date: 20050107
  Serious: No
  Sender: FDA-Public Use
  Company Number: WAES 0402USA01566

PATIENT
  Age: 78 Year
  Sex: Female
  Weight: 77.1115 kg

DRUGS (5)
  1. ZETIA [Suspect]
     Indication: HYPERCHOLESTEROLAEMIA
     Dosage: 10 MG/DAILY/PO
     Route: 048
     Dates: start: 20030306, end: 20030815
  2. DIOVAN HCT [Suspect]
  3. ZONEGRAN [Suspect]
     Dosage: 300 MG/HS/UNK
  4. LEVOXYL [Concomitant]
  5. VITAMIN B COMPLEX CAP [Concomitant]

REACTIONS (6)
  - DECREASED APPETITE [None]
  - DIARRHOEA [None]
  - DRUG INTERACTION [None]
  - FAECAL INCONTINENCE [None]
  - MALAISE [None]
  - WEIGHT DECREASED [None]
